FAERS Safety Report 8355814-2 (Version None)
Quarter: 2012Q2

REPORT INFORMATION
  Report Type: 
  Country: None (occurrence: None)
  Receive Date: 20120514
  Receipt Date: 20120510
  Transmission Date: 20120825
  Serious: No
  Sender: FDA-Public Use
  Company Number: US-PFIZER INC-2012115030

PATIENT
  Sex: Female
  Weight: 68.027 kg

DRUGS (3)
  1. EFFEXOR [Suspect]
     Indication: BIPOLAR DISORDER
     Dosage: 37.5 MG, DAILY
     Route: 048
     Dates: end: 20120101
  2. EFFEXOR [Suspect]
     Indication: ANXIETY
  3. EFFEXOR [Suspect]
     Indication: DEPRESSION
     Dosage: 75 MG, DAILY
     Route: 048
     Dates: start: 20120101, end: 20120501

REACTIONS (4)
  - WITHDRAWAL SYNDROME [None]
  - DEPRESSION [None]
  - HEADACHE [None]
  - STRESS [None]
